FAERS Safety Report 23351167 (Version 1)
Quarter: 2023Q4

REPORT INFORMATION
  Report Type: Report from Study
  Country: US (occurrence: US)
  Receive Date: 20231229
  Receipt Date: 20231229
  Transmission Date: 20240109
  Serious: No
  Sender: FDA-Public Use
  Company Number: US-AGIOS-2312US03585

PATIENT
  Sex: Female

DRUGS (1)
  1. MITAPIVAT [Suspect]
     Active Substance: MITAPIVAT
     Indication: Pyruvate kinase deficiency anaemia
     Dosage: 50 MILLIGRAM, BID
     Route: 048
     Dates: start: 20221005

REACTIONS (5)
  - Haemoglobin abnormal [Unknown]
  - Depressed mood [Unknown]
  - Malaise [Unknown]
  - Emotional disorder [Unknown]
  - Pain [Unknown]
